FAERS Safety Report 6083426-2 (Version None)
Quarter: 2009Q1

REPORT INFORMATION
  Report Type: 
  Country: None (occurrence: None)
  Receive Date: 20090219
  Receipt Date: 20090213
  Transmission Date: 20090719
  Serious: Yes (Hospitalization)
  Sender: FDA-Public Use
  Company Number: US-BIOGENIDEC-2008BI034644

PATIENT
  Age: 40 Year
  Sex: Female

DRUGS (1)
  1. TYSABRI [Suspect]
     Indication: MULTIPLE SCLEROSIS
     Route: 042
     Dates: start: 20080319

REACTIONS (5)
  - MULTIPLE SCLEROSIS RELAPSE [None]
  - PYREXIA [None]
  - STAPHYLOCOCCAL INFECTION [None]
  - VIRAL INFECTION [None]
  - WHITE BLOOD CELL COUNT INCREASED [None]
